FAERS Safety Report 19389443 (Version 2)
Quarter: 2021Q3

REPORT INFORMATION
  Report Type: Spontaneous
  Country: US (occurrence: US)
  Receive Date: 20210608
  Receipt Date: 20210707
  Transmission Date: 20211014
  Serious: No
  Sender: FDA-Public Use
  Company Number: US-ASTRAZENECA-2021A438463

PATIENT
  Sex: Male
  Weight: 81.6 kg

DRUGS (3)
  1. BYETTA [Suspect]
     Active Substance: EXENATIDE
     Dosage: DOSE UNKNOWN
     Route: 065
  2. BYDUREON BCISE [Suspect]
     Active Substance: EXENATIDE
     Indication: TYPE 2 DIABETES MELLITUS
     Dosage: 2.0MG UNKNOWN
     Route: 058
  3. BYDUREON [Suspect]
     Active Substance: EXENATIDE
     Dosage: DOSE UNKNOWN
     Route: 058

REACTIONS (4)
  - Fatigue [Unknown]
  - Weight decreased [Unknown]
  - Incorrect dose administered by device [Unknown]
  - Device malfunction [Unknown]
